FAERS Safety Report 18377997 (Version 1)
Quarter: 2020Q4

REPORT INFORMATION
  Report Type: Other
  Country: US (occurrence: US)
  Receive Date: 20201013
  Receipt Date: 20201013
  Transmission Date: 20210114
  Serious: No
  Sender: FDA-Public Use
  Company Number: US-CSPC OUYI PHARMACEUTICAL CO., LTD.-2092713

PATIENT
  Sex: Female
  Weight: 34.09 kg

DRUGS (1)
  1. AZITHROMYCIN ANHYDROUS. [Suspect]
     Active Substance: AZITHROMYCIN ANHYDROUS
     Route: 048

REACTIONS (10)
  - Decreased appetite [Unknown]
  - Language disorder [Unknown]
  - Nervousness [Unknown]
  - Insomnia [Unknown]
  - Disturbance in attention [Unknown]
  - Dyspnoea [Unknown]
  - Headache [Unknown]
  - Pruritus [Unknown]
  - Nausea [Unknown]
  - Balance disorder [Unknown]
